FAERS Safety Report 21964775 (Version 18)
Quarter: 2025Q2

REPORT INFORMATION
  Report Type: Spontaneous
  Country: CA (occurrence: CA)
  Receive Date: 20230207
  Receipt Date: 20250617
  Transmission Date: 20250716
  Serious: Yes (Hospitalization, Other)
  Sender: KARYOPHARM THERAPEUTICS
  Company Number: CA-KARYOPHARM THERAPEUTICS, INC.-2023KPT000564

PATIENT

DRUGS (9)
  1. XPOVIO [Suspect]
     Active Substance: SELINEXOR
     Indication: Plasma cell myeloma
     Route: 048
  2. XPOVIO [Suspect]
     Active Substance: SELINEXOR
     Route: 048
     Dates: start: 20160308
  3. XPOVIO [Suspect]
     Active Substance: SELINEXOR
     Route: 048
     Dates: start: 202405, end: 202501
  4. XPOVIO [Suspect]
     Active Substance: SELINEXOR
     Route: 048
     Dates: start: 202404
  5. XPOVIO [Suspect]
     Active Substance: SELINEXOR
     Route: 048
     Dates: start: 20230308, end: 202303
  6. XPOVIO [Suspect]
     Active Substance: SELINEXOR
     Route: 048
     Dates: start: 20161004
  7. XPOVIO [Suspect]
     Active Substance: SELINEXOR
     Route: 048
     Dates: start: 202311
  8. BORTEZOMIB [Concomitant]
     Active Substance: BORTEZOMIB
  9. DEXAMETHASONE [Concomitant]
     Active Substance: DEXAMETHASONE

REACTIONS (18)
  - Upper limb fracture [Unknown]
  - Wrist fracture [Unknown]
  - Fall [Unknown]
  - Infection [Recovered/Resolved]
  - Haemoglobin decreased [Recovering/Resolving]
  - Lymphocyte count decreased [Not Recovered/Not Resolved]
  - Illness [Unknown]
  - Monoclonal immunoglobulin increased [Unknown]
  - Feeling abnormal [Unknown]
  - Cellulitis [Recovered/Resolved]
  - Blood test abnormal [Unknown]
  - Neutrophil count decreased [Not Recovered/Not Resolved]
  - Fatigue [Not Recovered/Not Resolved]
  - Decreased appetite [Not Recovered/Not Resolved]
  - Dehydration [Recovering/Resolving]
  - Therapy interrupted [Recovered/Resolved]
  - Muscle injury [Recovering/Resolving]
  - Treatment delayed [Unknown]

NARRATIVE: CASE EVENT DATE: 20230101
